FAERS Safety Report 5534414-3 (Version None)
Quarter: 2007Q4

REPORT INFORMATION
  Report Type: 
  Country: None (occurrence: None)
  Receive Date: 20071120
  Receipt Date: 20071003
  Transmission Date: 20080405
  Serious: No
  Sender: FDA-Public Use
  Company Number: WAES 0710USA00940

PATIENT
  Age: 74 Year
  Sex: Male

DRUGS (2)
  1. JANUVIA [Suspect]
     Indication: TYPE 2 DIABETES MELLITUS
     Dosage: 100 MG/DAILY/PO
     Route: 048
     Dates: start: 20070530, end: 20070715
  2. VITAMIN E [Concomitant]

REACTIONS (6)
  - ASTHENIA [None]
  - DYSGEUSIA [None]
  - NOCTURIA [None]
  - PARAESTHESIA [None]
  - PRURITUS [None]
  - VISION BLURRED [None]
